FAERS Safety Report 6144888-5 (Version None)
Quarter: 2009Q2

REPORT INFORMATION
  Report Type: 
  Country: None (occurrence: None)
  Receive Date: 20090402
  Receipt Date: 20090402
  Transmission Date: 20091009
  Serious: Yes (Other)
  Sender: FDA-Public Use
  Company Number: None

PATIENT
  Age: 44 Year
  Sex: Female
  Weight: 58.0604 kg

DRUGS (3)
  1. MIRTAZAPINE [Suspect]
     Indication: DEPRESSION
     Dosage: 30 MG AT BEDTIME PO
     Route: 048
     Dates: start: 20081001, end: 20090318
  2. CELEXA [Concomitant]
  3. CLONAZEPAM [Concomitant]

REACTIONS (4)
  - ANGER [None]
  - INSOMNIA [None]
  - WEIGHT INCREASED [None]
  - WITHDRAWAL SYNDROME [None]
